FAERS Safety Report 9396018 (Version 2)
Quarter: 2013Q3

REPORT INFORMATION
  Report Type: Report from Study
  Country: US (occurrence: US)
  Receive Date: 20130711
  Receipt Date: 20130813
  Transmission Date: 20140515
  Serious: Yes (Life-Threatening, Hospitalization)
  Sender: FDA-Public Use
  Company Number: US-CUBIST PHARMACEUTICAL, INC.-2013CBST000139

PATIENT
  Age: 68 Year
  Sex: Male
  Weight: 99 kg

DRUGS (6)
  1. CUBICIN [Suspect]
     Indication: STAPHYLOCOCCAL BACTERAEMIA
     Dosage: 1500 MG, Q24H
     Route: 042
     Dates: start: 20120110, end: 20120128
  2. CUBICIN [Suspect]
     Dosage: 1000 MG, Q24H
     Route: 042
     Dates: start: 20120128, end: 20120205
  3. CUBICIN [Suspect]
     Dosage: 1500 MG, Q24H
     Route: 042
     Dates: start: 20120107, end: 20120109
  4. CUBICIN [Suspect]
     Dosage: 1250 MG, Q12H
     Route: 042
     Dates: start: 20120205, end: 20120212
  5. CIPROFLOXACIN [Concomitant]
     Indication: PRODUCT USED FOR UNKNOWN INDICATION
     Dosage: UNK UNK, UNK
     Route: 065
  6. CEFEPIME [Concomitant]
     Indication: PRODUCT USED FOR UNKNOWN INDICATION
     Dosage: UNK UNK, UNK
     Route: 065

REACTIONS (3)
  - Dyspnoea [Recovered/Resolved]
  - Renal failure acute [Recovered/Resolved]
  - Gastrointestinal haemorrhage [Recovered/Resolved]
